FAERS Safety Report 4300547-2 (Version None)
Quarter: 2004Q1

REPORT INFORMATION
  Report Type: 
  Country: None (occurrence: None)
  Receive Date: 20040217
  Receipt Date: 20040203
  Transmission Date: 20041129
  Serious: Yes (Disabling)
  Sender: FDA-Public Use
  Company Number: 2004008285

PATIENT
  Age: 59 Year
  Sex: Female
  Weight: 63 kg

DRUGS (2)
  1. TAHOR (ATORVASTATIN) [Suspect]
     Indication: HYPERCHOLESTEROLAEMIA
     Dosage: DAILY, ORAL
     Route: 048
     Dates: start: 19940101, end: 19990930
  2. SIMVASTATIN [Suspect]
     Indication: HYPERCHOLESTEROLAEMIA
     Dosage: EVERY OTHER DAY, ORAL
     Route: 048
     Dates: start: 20001001

REACTIONS (2)
  - CATARACT [None]
  - VISUAL ACUITY REDUCED [None]
